FAERS Safety Report 9119284 (Version 1)
Quarter: 2013Q1

REPORT INFORMATION
  Report Type: Spontaneous
  Country: US (occurrence: None)
  Receive Date: 20130221
  Receipt Date: 20130221
  Transmission Date: 20140127
  Serious: Yes (Hospitalization)
  Sender: FDA-Public Use
  Company Number: None

PATIENT
  Age: 45 Year
  Sex: Male
  Weight: 68.04 kg

DRUGS (2)
  1. LYRICA [Suspect]
     Indication: POST-TRAUMATIC NECK SYNDROME
     Dosage: 75 MG 1 AT NIGHT
     Dates: start: 20101020, end: 20111110
  2. LYRICA [Suspect]
     Dosage: 50MG 1 AT NIGHT
     Dates: start: 20111111, end: 20120901

REACTIONS (23)
  - Panic attack [None]
  - Anxiety [None]
  - Headache [None]
  - Eye pain [None]
  - Vision blurred [None]
  - Groin pain [None]
  - Testicular pain [None]
  - Chest pain [None]
  - Myalgia [None]
  - Neuralgia [None]
  - Fatigue [None]
  - Insomnia [None]
  - Paraesthesia [None]
  - Hypoaesthesia [None]
  - Contusion [None]
  - Arthralgia [None]
  - Abasia [None]
  - Depression [None]
  - Feeling of despair [None]
  - Euphoric mood [None]
  - Dizziness [None]
  - Paraesthesia [None]
  - Arthropathy [None]
